FAERS Safety Report 23235767 (Version 1)
Quarter: 2023Q4

REPORT INFORMATION
  Report Type: Report from Study
  Country: CN (occurrence: CN)
  Receive Date: 20231128
  Receipt Date: 20231128
  Transmission Date: 20240110
  Serious: Yes (Other)
  Sender: FDA-Public Use
  Company Number: CN-002147023-NVSC2023CN249319

PATIENT
  Sex: Male

DRUGS (1)
  1. LEQVIO [Suspect]
     Active Substance: INCLISIRAN SODIUM
     Indication: Hyperlipidaemia
     Dosage: 1.5 ML (AFTER THE FIRST ADMINISTRATI ON, THE DRUG WAS GIVEN AGAIN  AT THE 3RD MONTH AND THEN EVERY 6
     Route: 058
     Dates: start: 20231103

REACTIONS (5)
  - Blood triglycerides increased [Unknown]
  - Apolipoprotein B decreased [Unknown]
  - Apolipoprotein A-I decreased [Unknown]
  - Blood glucose increased [Unknown]
  - Blood cholesterol increased [Unknown]

NARRATIVE: CASE EVENT DATE: 20231120
